FAERS Safety Report 9989607 (Version 1)
Quarter: 2014Q1

REPORT INFORMATION
  Report Type: Report from Study
  Country: US (occurrence: US)
  Receive Date: 20140310
  Receipt Date: 20140310
  Transmission Date: 20141002
  Serious: No
  Sender: FDA-Public Use
  Company Number: US-ABBVIE-13P-163-1136748-00

PATIENT
  Age: 42 Year
  Sex: Female

DRUGS (10)
  1. HUMIRA [Suspect]
     Indication: RHEUMATOID ARTHRITIS
     Dates: start: 2012
  2. HUMIRA [Suspect]
     Indication: CROHN^S DISEASE
  3. LISINOPRIL [Concomitant]
     Indication: HYPERTENSION
  4. AMBIEN [Concomitant]
     Indication: INSOMNIA
  5. SERTRALINE [Concomitant]
     Indication: ANXIETY
  6. LIPITOR [Concomitant]
     Indication: BLOOD CHOLESTEROL INCREASED
  7. PANTOPRAZOLE [Concomitant]
     Indication: GASTROOESOPHAGEAL REFLUX DISEASE
  8. FISH OIL [Concomitant]
     Indication: SUPPLEMENTATION THERAPY
  9. VITAMIN B12 WITH GINSENG [Concomitant]
     Indication: VITAMIN SUPPLEMENTATION
  10. GLUCOSAMINE [Concomitant]
     Indication: VITAMIN SUPPLEMENTATION

REACTIONS (9)
  - Poor quality drug administered [Not Recovered/Not Resolved]
  - Rheumatoid arthritis [Not Recovered/Not Resolved]
  - Crohn^s disease [Not Recovered/Not Resolved]
  - Feeling hot [Not Recovered/Not Resolved]
  - Fatigue [Not Recovered/Not Resolved]
  - Injection site irritation [Not Recovered/Not Resolved]
  - Abdominal pain upper [Not Recovered/Not Resolved]
  - Nausea [Not Recovered/Not Resolved]
  - Pain [Not Recovered/Not Resolved]
